FAERS Safety Report 9369370 (Version 1)
Quarter: 2013Q2

REPORT INFORMATION
  Report Type: Spontaneous
  Country: CN (occurrence: CN)
  Receive Date: 20130626
  Receipt Date: 20130626
  Transmission Date: 20140414
  Serious: Yes (Other)
  Sender: FDA-Public Use
  Company Number: CN-BAYER-2013-070934

PATIENT
  Sex: Female

DRUGS (1)
  1. YASMIN [Suspect]
     Indication: CONTRACEPTION
     Dosage: UNK
     Route: 048
     Dates: start: 2012

REACTIONS (3)
  - Pelvic inflammatory disease [Recovering/Resolving]
  - Abdominal discomfort [Not Recovered/Not Resolved]
  - Withdrawal bleed [Not Recovered/Not Resolved]
